FAERS Safety Report 21915473 (Version 1)
Quarter: 2023Q1

REPORT INFORMATION
  Report Type: Spontaneous
  Country: US (occurrence: None)
  Receive Date: 20230125
  Receipt Date: 20230125
  Transmission Date: 20230417
  Serious: Yes (Hospitalization)
  Sender: FDA-Public Use
  Company Number: None

PATIENT
  Sex: Male

DRUGS (1)
  1. VIGABATRIN [Suspect]
     Active Substance: VIGABATRIN
     Indication: Lennox-Gastaut syndrome
     Dosage: FREQUENCY : AS DIRECTED;?MIX 3 PACKETS IN 30ML WATER AND GIVE 30 ML BY MOUTH EVERY MORNING AND AT BE
     Route: 048
     Dates: start: 20201014

REACTIONS (3)
  - Seizure [None]
  - Enterovirus test positive [None]
  - Human rhinovirus test positive [None]
